FAERS Safety Report 8829228 (Version 2)
Quarter: 2012Q4

REPORT INFORMATION
  Report Type: 
  Country: BR (occurrence: BR)
  Receive Date: 20121009
  Receipt Date: 20121012
  Transmission Date: 20130627
  Serious: Yes (Other)
  Sender: FDA-Public Use
  Company Number: PHHY2012BR087417

PATIENT
  Age: 13 Year
  Sex: Male

DRUGS (2)
  1. OMNITROPE [Suspect]
     Indication: BLOOD GROWTH HORMONE
     Dosage: 2 mg a day
     Route: 058
     Dates: start: 20120601, end: 20120825
  2. FEMARA [Concomitant]

REACTIONS (4)
  - Fall [Recovering/Resolving]
  - Ligament rupture [Recovering/Resolving]
  - Tibia fracture [Recovering/Resolving]
  - Patella fracture [Recovering/Resolving]
